FAERS Safety Report 4913450-1 (Version None)
Quarter: 2006Q1

REPORT INFORMATION
  Report Type: 
  Country: None (occurrence: None)
  Receive Date: 20060113
  Receipt Date: 20050519
  Transmission Date: 20060701
  Serious: Yes (Other)
  Sender: FDA-Public Use
  Company Number: HQWYE946225MAY05

PATIENT
  Age: 69 Year
  Sex: Female
  Weight: 95.34 kg

DRUGS (5)
  1. PREMPRO [Suspect]
     Indication: MENOPAUSAL SYMPTOMS
  2. ESTRADERM [Suspect]
  3. OGEN [Suspect]
  4. PROVERA [Suspect]
     Indication: MENOPAUSAL SYMPTOMS
  5. LEVOTHYROXINE SODIUM [Concomitant]

REACTIONS (1)
  - BREAST CANCER [None]
